FAERS Safety Report 20244302 (Version 1)
Quarter: 2021Q4

REPORT INFORMATION
  Report Type: Spontaneous
  Country: US (occurrence: US)
  Receive Date: 20211229
  Receipt Date: 20211229
  Transmission Date: 20220303
  Serious: No
  Sender: FDA-Public Use
  Company Number: US-APOTEX-2021AP019979

PATIENT
  Age: 61 Year
  Sex: Female

DRUGS (15)
  1. KETOTIFEN FUMARATE [Suspect]
     Active Substance: KETOTIFEN FUMARATE
     Indication: Rosacea
     Dosage: UNK
     Route: 065
  2. KETOTIFEN FUMARATE [Suspect]
     Active Substance: KETOTIFEN FUMARATE
     Indication: Blepharitis
  3. KETOTIFEN FUMARATE [Suspect]
     Active Substance: KETOTIFEN FUMARATE
     Indication: Dry eye
  4. OLOPATADINE [Suspect]
     Active Substance: OLOPATADINE
     Indication: Rosacea
     Dosage: UNK
     Route: 065
  5. OLOPATADINE [Suspect]
     Active Substance: OLOPATADINE
     Indication: Blepharitis
  6. OLOPATADINE [Suspect]
     Active Substance: OLOPATADINE
     Indication: Dry eye
  7. TOBRAMYCIN AND DEXAMETHASONE [Suspect]
     Active Substance: DEXAMETHASONE\TOBRAMYCIN
     Indication: Rosacea
     Dosage: UNK
     Route: 065
  8. TOBRAMYCIN AND DEXAMETHASONE [Suspect]
     Active Substance: DEXAMETHASONE\TOBRAMYCIN
     Indication: Blepharitis
  9. TOBRAMYCIN AND DEXAMETHASONE [Suspect]
     Active Substance: DEXAMETHASONE\TOBRAMYCIN
     Indication: Dry eye
  10. LOTEPREDNOL [Suspect]
     Active Substance: LOTEPREDNOL
     Indication: Rosacea
     Dosage: UNK
     Route: 065
  11. LOTEPREDNOL [Suspect]
     Active Substance: LOTEPREDNOL
     Indication: Blepharitis
  12. LOTEPREDNOL [Suspect]
     Active Substance: LOTEPREDNOL
     Indication: Dry eye
  13. CYCLOSPORINE [Concomitant]
     Active Substance: CYCLOSPORINE
     Indication: Rosacea
     Dosage: UNK
     Route: 065
  14. CYCLOSPORINE [Concomitant]
     Active Substance: CYCLOSPORINE
     Indication: Blepharitis
  15. CYCLOSPORINE [Concomitant]
     Active Substance: CYCLOSPORINE
     Indication: Dry eye

REACTIONS (3)
  - Dacryostenosis acquired [Recovered/Resolved]
  - Ocular toxicity [Recovered/Resolved]
  - Inflammation [Recovered/Resolved]
